FAERS Safety Report 20123622 (Version 2)
Quarter: 2021Q4

REPORT INFORMATION
  Report Type: Spontaneous
  Country: CN (occurrence: CN)
  Receive Date: 20211129
  Receipt Date: 20211210
  Transmission Date: 20220303
  Serious: Yes (Other)
  Sender: FDA-Public Use
  Company Number: CN-AstraZeneca-2021A818079

PATIENT

DRUGS (1)
  1. ZOLADEX [Suspect]
     Active Substance: GOSERELIN ACETATE
     Indication: Breast cancer female
     Dosage: 3.6MG/28 DAYS3.6MG UNKNOWN
     Route: 058

REACTIONS (1)
  - Cerebral venous sinus thrombosis [Recovered/Resolved]

NARRATIVE: CASE EVENT DATE: 20211101
